FAERS Safety Report 9395945 (Version 1)
Quarter: 2013Q3

REPORT INFORMATION
  Report Type: Spontaneous
  Country: FR (occurrence: FR)
  Receive Date: 20130711
  Receipt Date: 20130711
  Transmission Date: 20140515
  Serious: Yes (Life-Threatening, Hospitalization)
  Sender: FDA-Public Use
  Company Number: FR-ASTRAZENECA-2013SE51119

PATIENT
  Age: 30916 Day
  Sex: Male

DRUGS (11)
  1. MOPRAL [Suspect]
     Indication: GASTROOESOPHAGEAL REFLUX DISEASE
     Route: 048
     Dates: start: 2013, end: 20130512
  2. CARBIMAZOLE [Suspect]
     Indication: BASEDOW^S DISEASE
     Route: 048
     Dates: start: 20130325, end: 20130513
  3. CORTANCYL [Concomitant]
     Indication: BASEDOW^S DISEASE
     Route: 048
     Dates: start: 201303
  4. LEVOTHYROX [Concomitant]
     Indication: BASEDOW^S DISEASE
     Route: 048
  5. BISOPROLOL [Concomitant]
     Indication: HYPERTENSION
     Route: 048
  6. KARDEGIC [Concomitant]
     Indication: CORONARY ARTERY DISEASE
     Route: 048
  7. AMLOR [Concomitant]
     Indication: HYPERTENSION
     Route: 048
  8. CRESTOR [Concomitant]
     Indication: DYSLIPIDAEMIA
     Route: 048
  9. LASILIX [Concomitant]
     Indication: OEDEMA
     Route: 048
  10. LANTUS [Concomitant]
     Indication: DIABETES MELLITUS
     Route: 058
  11. HUMALOG [Concomitant]
     Indication: DIABETES MELLITUS
     Route: 058

REACTIONS (3)
  - Pleural effusion [Unknown]
  - Agranulocytosis [Recovered/Resolved]
  - Pyrexia [Unknown]
